FAERS Safety Report 7936180-0 (Version None)
Quarter: 2011Q4

REPORT INFORMATION
  Report Type: 
  Country: None (occurrence: None)
  Receive Date: 20111123
  Receipt Date: 20111118
  Transmission Date: 20120403
  Serious: Yes (Other)
  Sender: FDA-Public Use
  Company Number: US-PFIZER INC-2011284520

PATIENT
  Age: 73 Year
  Sex: Female

DRUGS (2)
  1. ZARONTIN [Suspect]
     Dosage: UNK
     Dates: start: 19640101
  2. DILANTIN-125 [Suspect]
     Indication: GRAND MAL CONVULSION
     Dosage: UNK
     Dates: start: 19470101

REACTIONS (4)
  - CONVULSION [None]
  - GRAND MAL CONVULSION [None]
  - MUSCLE DISORDER [None]
  - PYREXIA [None]
